FAERS Safety Report 22606297 (Version 26)
Quarter: 2025Q4

REPORT INFORMATION
  Report Type: Report from Study
  Country: CH (occurrence: CH)
  Receive Date: 20230615
  Receipt Date: 20251105
  Transmission Date: 20260117
  Serious: Yes (Hospitalization)
  Sender: SANOFI AVENTIS
  Company Number: CH-SA-SAC20230512000273

PATIENT
  Age: 47 Year
  Sex: Male
  Weight: 100.1 kg

DRUGS (82)
  1. ISATUXIMAB [Suspect]
     Active Substance: ISATUXIMAB
     Indication: Plasma cell myeloma refractory
     Dosage: 1000 MG, QW
     Route: 065
     Dates: start: 20230508, end: 20230604
  2. ISATUXIMAB [Suspect]
     Active Substance: ISATUXIMAB
     Dosage: 1000 MG, BIW
     Dates: start: 20230605, end: 20230618
  3. ISATUXIMAB [Suspect]
     Active Substance: ISATUXIMAB
     Dosage: 1000 MG, BIW
     Dates: start: 20230626, end: 20230709
  4. ISATUXIMAB [Suspect]
     Active Substance: ISATUXIMAB
     Dosage: 1000 MG, BIW
     Route: 065
     Dates: start: 20230710, end: 20230806
  5. ISATUXIMAB [Suspect]
     Active Substance: ISATUXIMAB
     Dosage: 1000 MG, BIW
     Dates: start: 20230807, end: 20230903
  6. ISATUXIMAB [Suspect]
     Active Substance: ISATUXIMAB
     Dosage: 1000 MG, BIW
     Dates: start: 20230904, end: 20231002
  7. ISATUXIMAB [Suspect]
     Active Substance: ISATUXIMAB
     Dosage: 1000 MG, BIW
     Dates: start: 20231003, end: 20231105
  8. ISATUXIMAB [Suspect]
     Active Substance: ISATUXIMAB
     Dosage: 1000 MG, BIW
     Dates: start: 20231106, end: 20231203
  9. ISATUXIMAB [Suspect]
     Active Substance: ISATUXIMAB
     Dosage: 1000 MG, BIW
     Dates: start: 20231204, end: 20240102
  10. ISATUXIMAB [Suspect]
     Active Substance: ISATUXIMAB
     Dosage: 1000 MG, BIW
     Dates: start: 20240103, end: 20240129
  11. ISATUXIMAB [Suspect]
     Active Substance: ISATUXIMAB
     Dosage: 1000 MG, BIW
     Dates: start: 20240130, end: 20240226
  12. ISATUXIMAB [Suspect]
     Active Substance: ISATUXIMAB
     Dosage: 1000 MG, BIW
     Dates: start: 20240227, end: 20240325
  13. ISATUXIMAB [Suspect]
     Active Substance: ISATUXIMAB
     Dosage: 1000 MG, BIW
     Dates: start: 20240326, end: 20240422
  14. ISATUXIMAB [Suspect]
     Active Substance: ISATUXIMAB
     Dosage: 1000 MG, BIW
     Dates: start: 20240423, end: 20240520
  15. ISATUXIMAB [Suspect]
     Active Substance: ISATUXIMAB
     Dosage: 1000 MG, BIW
     Dates: start: 20240521, end: 20240617
  16. ISATUXIMAB [Suspect]
     Active Substance: ISATUXIMAB
     Dosage: 1000 MG, BIW
     Dates: start: 20240723, end: 20240819
  17. ISATUXIMAB [Suspect]
     Active Substance: ISATUXIMAB
     Dosage: 1000 MG, BIW
     Dates: start: 20240820, end: 20240901
  18. ISATUXIMAB [Suspect]
     Active Substance: ISATUXIMAB
     Dosage: 1000 MG, BIW
     Dates: start: 20240920, end: 20241007
  19. ISATUXIMAB [Suspect]
     Active Substance: ISATUXIMAB
     Dosage: 1000 MG, BIW
     Dates: start: 20241008, end: 20241104
  20. ISATUXIMAB [Suspect]
     Active Substance: ISATUXIMAB
     Dosage: 1000 MG, BIW
     Dates: start: 20241105, end: 20241202
  21. ISATUXIMAB [Suspect]
     Active Substance: ISATUXIMAB
     Dosage: 1000 MG, BIW
     Dates: start: 20241203, end: 20241229
  22. ISATUXIMAB [Suspect]
     Active Substance: ISATUXIMAB
     Dosage: 1000 MG, 1X
     Dates: start: 20241230, end: 20250113
  23. ISATUXIMAB [Suspect]
     Active Substance: ISATUXIMAB
     Dosage: 1000 MG, 1X
     Dates: start: 20250128
  24. DEXAMETHASONE [Suspect]
     Active Substance: DEXAMETHASONE
     Indication: Plasma cell myeloma refractory
     Dosage: 20 MG (FREQUENCY: DAY 1, 2, 8, 9, 15, 16, 22, 23
     Dates: start: 20230508, end: 20230604
  25. DEXAMETHASONE [Suspect]
     Active Substance: DEXAMETHASONE
     Dosage: 20 MG, QW
     Dates: start: 20230605, end: 20230611
  26. DEXAMETHASONE [Suspect]
     Active Substance: DEXAMETHASONE
     Dosage: 20 MG, QW
     Dates: start: 20230619, end: 20230709
  27. DEXAMETHASONE [Suspect]
     Active Substance: DEXAMETHASONE
     Dosage: 20 MG, QW
     Dates: start: 20230710, end: 20230716
  28. DEXAMETHASONE [Suspect]
     Active Substance: DEXAMETHASONE
     Dosage: 12 MG, QW
     Dates: start: 20230717, end: 20230806
  29. DEXAMETHASONE [Suspect]
     Active Substance: DEXAMETHASONE
     Dosage: 8 MG, QW
     Dates: start: 20230807, end: 20230903
  30. DEXAMETHASONE [Suspect]
     Active Substance: DEXAMETHASONE
     Dosage: 8 MG, QW
     Dates: start: 20230904, end: 20231002
  31. DEXAMETHASONE [Suspect]
     Active Substance: DEXAMETHASONE
     Dosage: 8 MG, QW
     Dates: start: 20231003, end: 20231029
  32. DEXAMETHASONE [Suspect]
     Active Substance: DEXAMETHASONE
     Dosage: 4 MG, QW
     Dates: start: 20231030, end: 20231105
  33. DEXAMETHASONE [Suspect]
     Active Substance: DEXAMETHASONE
     Dosage: 8 MG, QW
     Dates: start: 20231106, end: 20231203
  34. DEXAMETHASONE [Suspect]
     Active Substance: DEXAMETHASONE
     Dosage: 4 MG, QW
     Dates: start: 20231204, end: 20231210
  35. DEXAMETHASONE [Suspect]
     Active Substance: DEXAMETHASONE
     Dosage: 2 MG, QW
     Dates: start: 20231211, end: 20240102
  36. DEXAMETHASONE [Suspect]
     Active Substance: DEXAMETHASONE
     Dosage: 2 MG (DAY 1, 8 AND 15)
     Dates: start: 20240103, end: 20240129
  37. DEXAMETHASONE [Suspect]
     Active Substance: DEXAMETHASONE
     Dosage: 2 MG
     Dates: start: 20240130, end: 20240226
  38. DEXAMETHASONE [Suspect]
     Active Substance: DEXAMETHASONE
     Dosage: 2 MG
     Dates: start: 20240227, end: 20240325
  39. DEXAMETHASONE [Suspect]
     Active Substance: DEXAMETHASONE
     Dosage: 2 MG (DAY 1,8 AND 15)
     Dates: start: 20240326, end: 20240422
  40. DEXAMETHASONE [Suspect]
     Active Substance: DEXAMETHASONE
     Dosage: 2 MG, BIW
     Dates: start: 20240423, end: 20240520
  41. DEXAMETHASONE [Suspect]
     Active Substance: DEXAMETHASONE
     Dosage: 2 MG, BIW
     Dates: start: 20240723, end: 20240819
  42. DEXAMETHASONE [Suspect]
     Active Substance: DEXAMETHASONE
     Dosage: 2 MG, BIW
     Dates: start: 20240820, end: 20240901
  43. DEXAMETHASONE [Suspect]
     Active Substance: DEXAMETHASONE
     Dosage: 2 MG, BIW
     Dates: start: 20240920, end: 20241007
  44. DEXAMETHASONE [Suspect]
     Active Substance: DEXAMETHASONE
     Dosage: 2 MG, BIW
     Dates: start: 20241008, end: 20241104
  45. DEXAMETHASONE [Suspect]
     Active Substance: DEXAMETHASONE
     Dosage: 2 MG, BIW
     Dates: start: 20241105, end: 20241202
  46. DEXAMETHASONE [Suspect]
     Active Substance: DEXAMETHASONE
     Dosage: 2 MG, BIW
     Dates: start: 20241203, end: 20241229
  47. DEXAMETHASONE [Suspect]
     Active Substance: DEXAMETHASONE
     Dosage: 2 MG, 1X
     Dates: start: 20241230, end: 20250113
  48. DEXAMETHASONE [Suspect]
     Active Substance: DEXAMETHASONE
     Dosage: 2 MG, 1X
     Dates: start: 20250128
  49. CARFILZOMIB [Suspect]
     Active Substance: CARFILZOMIB
     Indication: Plasma cell myeloma refractory
     Dosage: 40 MG (DAY 1,2)
     Dates: start: 20230508, end: 20230514
  50. CARFILZOMIB [Suspect]
     Active Substance: CARFILZOMIB
     Dosage: 140 MG, QW
     Dates: start: 20230515, end: 20230604
  51. CARFILZOMIB [Suspect]
     Active Substance: CARFILZOMIB
     Dosage: 140 MG (FREQUENCY: DAY 1, 8 AND 15
     Dates: start: 20230605, end: 20230611
  52. CARFILZOMIB [Suspect]
     Active Substance: CARFILZOMIB
     Dosage: 140 MG (FREQUENCY: DAY 8 AND 15
     Dates: start: 20230619, end: 20230709
  53. CARFILZOMIB [Suspect]
     Active Substance: CARFILZOMIB
     Dosage: 140 MG (FREQUENCY: DAY 1, 8 AND 15
     Dates: start: 20230710, end: 20230806
  54. CARFILZOMIB [Suspect]
     Active Substance: CARFILZOMIB
     Dosage: 140 MG (DAY 1, 8,16)
     Dates: start: 20230807, end: 20230903
  55. CARFILZOMIB [Suspect]
     Active Substance: CARFILZOMIB
     Dosage: 140 MG (DAY 1, 8 AND 15)
     Dates: start: 20230904, end: 20231002
  56. CARFILZOMIB [Suspect]
     Active Substance: CARFILZOMIB
     Dosage: 140 MG (DAY 1, 8 AND 15)
     Dates: start: 20231003, end: 20231105
  57. CARFILZOMIB [Suspect]
     Active Substance: CARFILZOMIB
     Dosage: 140 MG (DAY 1, 8 AND 15)
     Dates: start: 20231108, end: 20231203
  58. CARFILZOMIB [Suspect]
     Active Substance: CARFILZOMIB
     Dosage: 140 MG (DAY 1, 8 AND 15)
     Dates: start: 20231204, end: 20240102
  59. CARFILZOMIB [Suspect]
     Active Substance: CARFILZOMIB
     Dosage: 140 MG (DAY 1, 8 AND 15)
     Dates: start: 20240103, end: 20240115
  60. CARFILZOMIB [Suspect]
     Active Substance: CARFILZOMIB
     Dosage: 100 MG (FREQUENCY: DAY 1, 8, AND 15)
     Dates: start: 20240130, end: 20240226
  61. CARFILZOMIB [Suspect]
     Active Substance: CARFILZOMIB
     Dosage: 100 MG (FREQUENCY: DAY 1, 8 AND 15)
     Dates: start: 20240227, end: 20240325
  62. CARFILZOMIB [Suspect]
     Active Substance: CARFILZOMIB
     Dosage: 100 MG (FREQUENCY: DAY 1, 8 AND 15)
     Dates: start: 20240326, end: 20240422
  63. CARFILZOMIB [Suspect]
     Active Substance: CARFILZOMIB
     Dosage: 100 MG, BIW
     Dates: start: 20240423, end: 20240520
  64. CARFILZOMIB [Suspect]
     Active Substance: CARFILZOMIB
     Dosage: 100 MG, BIW
     Dates: start: 20240521, end: 20240617
  65. CARFILZOMIB [Suspect]
     Active Substance: CARFILZOMIB
     Dosage: 100 MG, BIW
     Dates: start: 20240723, end: 20240819
  66. CARFILZOMIB [Suspect]
     Active Substance: CARFILZOMIB
     Dosage: 100 MG, BIW
     Dates: start: 20240820, end: 20240901
  67. CARFILZOMIB [Suspect]
     Active Substance: CARFILZOMIB
     Dosage: 100 MG, BIW
     Dates: start: 20240920, end: 20241007
  68. CARFILZOMIB [Suspect]
     Active Substance: CARFILZOMIB
     Dosage: 100 MG, BIW
     Dates: start: 20241008, end: 20241104
  69. CARFILZOMIB [Suspect]
     Active Substance: CARFILZOMIB
     Dosage: 100 MG, BIW
     Dates: start: 20241105, end: 20241202
  70. CARFILZOMIB [Suspect]
     Active Substance: CARFILZOMIB
     Dosage: 100 MG, BIW
     Dates: start: 20241203, end: 20241229
  71. CARFILZOMIB [Suspect]
     Active Substance: CARFILZOMIB
     Dosage: 100 MG, 1X
     Dates: start: 20241230, end: 20250113
  72. CARFILZOMIB [Suspect]
     Active Substance: CARFILZOMIB
     Dosage: 100 MG, 1X
     Dates: start: 20250128
  73. CALCIMAGON [CALCIUM] [Concomitant]
     Indication: Osteolysis
     Dosage: UNK
     Dates: start: 202110
  74. PANTOPRAZOLE [Concomitant]
     Active Substance: PANTOPRAZOLE
     Indication: Prophylaxis
     Dosage: UNK
     Dates: start: 202111
  75. VALTREX [Concomitant]
     Active Substance: VALACYCLOVIR HYDROCHLORIDE
     Dosage: UNK
     Dates: start: 20230508
  76. BACTRIM [Concomitant]
     Active Substance: SULFAMETHOXAZOLE\TRIMETHOPRIM
     Indication: Prophylaxis
     Dosage: UNK
     Dates: start: 20230508
  77. FILGRASTIM [Concomitant]
     Active Substance: FILGRASTIM
     Indication: Symptomatic treatment
     Dosage: UNK
     Dates: start: 20230609, end: 20230614
  78. ENOXAPARIN SODIUM [Concomitant]
     Active Substance: ENOXAPARIN SODIUM
     Indication: Prophylaxis
     Dosage: UNK
     Dates: start: 20230606, end: 20230612
  79. VITARUBIN [CYANOCOBALAMIN] [Concomitant]
     Indication: Vitamin B12 decreased
     Dosage: UNK
     Route: 065
     Dates: start: 20230605, end: 20230605
  80. XGEVA [Concomitant]
     Active Substance: DENOSUMAB
     Indication: Plasma cell myeloma
     Dosage: UNK
     Dates: start: 20211025
  81. DAFALGAN [Concomitant]
     Active Substance: ACETAMINOPHEN
     Indication: Premedication
     Dosage: UNK
     Dates: start: 20230508, end: 20230710
  82. CLEMASTINE FUMARATE [Concomitant]
     Active Substance: CLEMASTINE FUMARATE
     Indication: Premedication
     Dosage: UNK
     Dates: start: 20230508, end: 20230814

REACTIONS (20)
  - Bile duct stone [Recovered/Resolved]
  - Superficial vein thrombosis [Recovered/Resolved]
  - Infusion related reaction [Recovered/Resolved]
  - Infusion related reaction [Recovering/Resolving]
  - White blood cell count decreased [Recovered/Resolved]
  - Platelet count decreased [Not Recovered/Not Resolved]
  - Platelet count decreased [Not Recovered/Not Resolved]
  - Neutrophil count decreased [Recovered/Resolved]
  - White blood cell count decreased [Recovered/Resolved]
  - White blood cell count decreased [Recovered/Resolved]
  - Anaemia [Recovered/Resolved]
  - Anaemia [Not Recovered/Not Resolved]
  - Muscle spasms [Recovered/Resolved]
  - Anaemia [Recovered/Resolved]
  - Agitation [Recovered/Resolved]
  - White blood cell count decreased [Recovered/Resolved]
  - Platelet count decreased [Recovered/Resolved]
  - Platelet count decreased [Not Recovered/Not Resolved]
  - Agitation [Recovered/Resolved]
  - Platelet count decreased [Not Recovered/Not Resolved]

NARRATIVE: CASE EVENT DATE: 20230508
